FAERS Safety Report 13737871 (Version 1)
Quarter: 2017Q3

REPORT INFORMATION
  Report Type: Spontaneous
  Country: US (occurrence: US)
  Receive Date: 20170710
  Receipt Date: 20170710
  Transmission Date: 20171127
  Serious: No
  Sender: FDA-Public Use
  Company Number: US-SAOL THERAPEUTICS-2016SAO00703

PATIENT
  Sex: Female

DRUGS (3)
  1. LIORESAL [Suspect]
     Active Substance: BACLOFEN
     Dosage: 75 ?G, \DAY
     Route: 037
     Dates: start: 20160912, end: 201609
  2. LIORESAL [Suspect]
     Active Substance: BACLOFEN
     Dosage: 25 ?G. \DAY
     Route: 037
     Dates: start: 201609
  3. LIORESAL [Suspect]
     Active Substance: BACLOFEN
     Indication: MUSCLE SPASTICITY
     Dosage: 75 ?G, ONCE
     Route: 037
     Dates: start: 2016, end: 2016

REACTIONS (2)
  - Hypokinesia [Recovered/Resolved]
  - Asthenia [Recovered/Resolved]

NARRATIVE: CASE EVENT DATE: 2016
